FAERS Safety Report 15480163 (Version 1)
Quarter: 2018Q4

REPORT INFORMATION
  Report Type: Spontaneous
  Country: FR (occurrence: FR)
  Receive Date: 20181009
  Receipt Date: 20181009
  Transmission Date: 20190205
  Serious: Yes (Hospitalization)
  Sender: FDA-Public Use
  Company Number: FR-JUBILANT HOLLISTERSTIER LLC-2055870

PATIENT
  Age: 76 Year
  Sex: Female

DRUGS (1)
  1. WASP HYMENOPTERA VENOM MULTIDOSE [Suspect]
     Active Substance: POLISTES ANNULARIS VENOM PROTEIN\POLISTES EXCLAMANS VENOM PROTEIN\POLISTES FUSCATUS VENOM PROTEIN\POLISTES METRICUS VENOM PROTEIN

REACTIONS (2)
  - Headache [Recovering/Resolving]
  - Hypertension [Recovering/Resolving]

NARRATIVE: CASE EVENT DATE: 20180904
